FAERS Safety Report 8340244-X (Version None)
Quarter: 2012Q2

REPORT INFORMATION
  Report Type: 
  Country: None (occurrence: None)
  Receive Date: 20120502
  Receipt Date: 20120502
  Transmission Date: 20120825
  Serious: No
  Sender: FDA-Public Use
  Company Number: None

PATIENT
  Age: 27 Year
  Sex: Female

DRUGS (1)
  1. CHLORHEXIDINE GLUCONATE [Suspect]
     Dosage: TOPICAL
     Route: 061

REACTIONS (2)
  - PRODUCT ADHESION ISSUE [None]
  - APPLICATION SITE DRYNESS [None]
